FAERS Safety Report 12356447 (Version 1)
Quarter: 2016Q2

REPORT INFORMATION
  Report Type: Spontaneous
  Country: FR (occurrence: FR)
  Receive Date: 20160511
  Receipt Date: 20160511
  Transmission Date: 20160815
  Serious: No
  Sender: FDA-Public Use
  Company Number: FR-QOL MEDICAL, LLC-1051959

PATIENT
  Age: 21 Month
  Sex: Male
  Weight: 10.6 kg

DRUGS (1)
  1. SUCRAID [Suspect]
     Active Substance: SACROSIDASE
     Dates: start: 20150401

REACTIONS (3)
  - Diarrhoea [Unknown]
  - Vomiting [Unknown]
  - Gastrooesophageal reflux disease [Unknown]

NARRATIVE: CASE EVENT DATE: 20160104
